FAERS Safety Report 14961018 (Version 1)
Quarter: 2018Q2

REPORT INFORMATION
  Report Type: Spontaneous
  Country: US (occurrence: US)
  Receive Date: 20180531
  Receipt Date: 20180531
  Transmission Date: 20180711
  Serious: No
  Sender: FDA-Public Use
  Company Number: US-009507513-1805USA014067

PATIENT

DRUGS (10)
  1. ALLEGRA [Suspect]
     Active Substance: FEXOFENADINE HYDROCHLORIDE
     Dosage: UNK
  2. BENADRYL [Suspect]
     Active Substance: DIPHENHYDRAMINE HYDROCHLORIDE
     Dosage: UNK
  3. NASALCROM [Suspect]
     Active Substance: CROMOLYN SODIUM
     Dosage: UNK
  4. ALAWAY [Suspect]
     Active Substance: KETOTIFEN FUMARATE
     Dosage: UNK
  5. ALBUTEROL. [Suspect]
     Active Substance: ALBUTEROL
     Dosage: UNK
  6. SINGULAIR [Suspect]
     Active Substance: MONTELUKAST SODIUM
     Dosage: UNK
  7. FLONASE [Suspect]
     Active Substance: FLUTICASONE PROPIONATE
     Dosage: UNK
  8. QUERCETIN [Suspect]
     Active Substance: QUERCETIN
     Dosage: UNK
  9. ASCORBIC ACID. [Suspect]
     Active Substance: ASCORBIC ACID
     Dosage: UNK
  10. BROMELAINS [Suspect]
     Active Substance: BROMELAINS
     Dosage: UNK

REACTIONS (3)
  - Ear pruritus [Unknown]
  - Dyspnoea [Unknown]
  - Drug ineffective [Unknown]
